FAERS Safety Report 8316660-9 (Version None)
Quarter: 2012Q2

REPORT INFORMATION
  Report Type: 
  Country: None (occurrence: None)
  Receive Date: 20120427
  Receipt Date: 20120426
  Transmission Date: 20120825
  Serious: Yes (Death, Other)
  Sender: FDA-Public Use
  Company Number: PHHY2012NL016975

PATIENT
  Sex: Female

DRUGS (3)
  1. ZOMETA [Suspect]
     Dosage: 4 MG/ 100 ONCE PER 21 DAYS
     Dates: end: 20120210
  2. ZOMETA [Suspect]
     Indication: RENAL CELL CARCINOMA
     Dosage: 4 MG/ 100 ML ONCE PER 21 DAYS
     Dates: start: 20110809
  3. ZOMETA [Suspect]
     Dosage: 4 MG/ 100 ML ONCE PER 21 DAYS
     Dates: start: 20120120

REACTIONS (3)
  - NEOPLASM PROGRESSION [None]
  - NEOPLASM MALIGNANT [None]
  - TERMINAL STATE [None]
